FAERS Safety Report 9601894 (Version 1)
Quarter: 2013Q4

REPORT INFORMATION
  Report Type: Spontaneous
  Country: ES (occurrence: None)
  Receive Date: 20131002
  Receipt Date: 20131002
  Transmission Date: 20140711
  Serious: Yes (Hospitalization)
  Sender: FDA-Public Use
  Company Number: 2013090096

PATIENT
  Age: 47 Year
  Sex: Male

DRUGS (2)
  1. D-PENICILLAMINE [Suspect]
     Indication: HEPATO-LENTICULAR DEGENERATION
  2. STATINS [Concomitant]

REACTIONS (4)
  - Respiratory failure [None]
  - Obliterative bronchiolitis [None]
  - Lung transplant [None]
  - Interstitial lung disease [None]
